FAERS Safety Report 9799760 (Version 1)
Quarter: 2014Q1

REPORT INFORMATION
  Report Type: Spontaneous
  Country: US (occurrence: US)
  Receive Date: 20140106
  Receipt Date: 20140106
  Transmission Date: 20141002
  Serious: Yes (Other)
  Sender: FDA-Public Use
  Company Number: US-GILEAD-2010-0034303

PATIENT
  Age: 72 Year
  Sex: Male

DRUGS (10)
  1. LETAIRIS [Suspect]
     Indication: PULMONARY HYPERTENSION
     Route: 048
     Dates: start: 20101015, end: 20101205
  2. DIGOXIN [Concomitant]
  3. LOSARTAN [Concomitant]
  4. METOPROLOL [Concomitant]
  5. MINOXIDIL [Concomitant]
  6. BUMETANIDE [Concomitant]
  7. WARFARIN [Concomitant]
  8. KLOR-CON [Concomitant]
  9. SPIRIVA [Concomitant]
  10. ALLOPURINOL [Concomitant]

REACTIONS (2)
  - Swelling [Unknown]
  - Weight increased [Unknown]
